FAERS Safety Report 17009158 (Version 1)
Quarter: 2019Q4

REPORT INFORMATION
  Report Type: Other
  Country: CA (occurrence: CA)
  Receive Date: 20191108
  Receipt Date: 20191108
  Transmission Date: 20200122
  Serious: Yes (Hospitalization, Other)
  Sender: FDA-Public Use
  Company Number: CA-PFIZER INC-2019476331

PATIENT
  Age: 79 Year
  Sex: Male

DRUGS (4)
  1. PREDNISONE. [Suspect]
     Active Substance: PREDNISONE
     Dosage: 5 MG, UNK
     Route: 048
  2. DOCETAXEL. [Suspect]
     Active Substance: DOCETAXEL
     Dosage: UNK
     Route: 065
  3. DEXAMETHASONE. [Suspect]
     Active Substance: DEXAMETHASONE
     Dosage: 8 MG, UNK
     Route: 048
  4. ZOLEDRONIC ACID [Concomitant]
     Active Substance: ZOLEDRONIC ACID
     Dosage: UNK

REACTIONS (10)
  - Cushingoid [Unknown]
  - Peripheral swelling [Unknown]
  - Condition aggravated [Unknown]
  - Hip deformity [Unknown]
  - Movement disorder [Unknown]
  - Fatigue [Unknown]
  - Osteonecrosis [Unknown]
  - Retroperitoneal lymphadenopathy [Unknown]
  - Arthralgia [Unknown]
  - Back pain [Unknown]
